FAERS Safety Report 9566960 (Version 1)
Quarter: 2013Q3

REPORT INFORMATION
  Report Type: Spontaneous
  Country: US (occurrence: US)
  Receive Date: 20130930
  Receipt Date: 20130930
  Transmission Date: 20140515
  Serious: No
  Sender: FDA-Public Use
  Company Number: US-AMGEN-USASP2012060311

PATIENT
  Age: 54 Year
  Sex: Male
  Weight: 72.56 kg

DRUGS (5)
  1. ENBREL [Suspect]
     Indication: PRODUCT USED FOR UNKNOWN INDICATION
     Dosage: 50 MG, QWK
     Route: 058
  2. METHOTREXATE [Concomitant]
     Dosage: 25 MG/ML, UNK
  3. NEXIUM                             /01479302/ [Concomitant]
     Dosage: 20 MG, UNK
  4. FOLIC ACID [Concomitant]
     Dosage: 1 MG, UNK
  5. ADVIL                              /00044201/ [Concomitant]
     Dosage: UNK

REACTIONS (3)
  - Hand-foot-and-mouth disease [Unknown]
  - Tooth abscess [Unknown]
  - Gastrointestinal infection [Unknown]
